FAERS Safety Report 9178569 (Version 1)
Quarter: 2013Q1

REPORT INFORMATION
  Report Type: Spontaneous
  Country: US (occurrence: US)
  Receive Date: 20130321
  Receipt Date: 20130321
  Transmission Date: 20140127
  Serious: No
  Sender: FDA-Public Use
  Company Number: US-PFIZER INC-2013089087

PATIENT
  Sex: Male

DRUGS (2)
  1. TYGACIL [Suspect]
     Indication: KLEBSIELLA INFECTION
     Dosage: UNK
     Dates: start: 201302, end: 20130315
  2. TYGACIL [Suspect]
     Indication: ENTEROCOCCAL INFECTION

REACTIONS (2)
  - Drug ineffective [Unknown]
  - Incorrect drug administration duration [Unknown]
